FAERS Safety Report 16040305 (Version 1)
Quarter: 2019Q1

REPORT INFORMATION
  Report Type: Spontaneous
  Country: US (occurrence: US)
  Receive Date: 20190306
  Receipt Date: 20190306
  Transmission Date: 20190418
  Serious: Yes (Other)
  Sender: FDA-Public Use
  Company Number: PHEH2019US008601

PATIENT
  Age: 13 Year
  Sex: Female

DRUGS (3)
  1. FAMOTIDINE. [Concomitant]
     Active Substance: FAMOTIDINE
     Indication: PRODUCT USED FOR UNKNOWN INDICATION
  2. ZOFRAN [Suspect]
     Active Substance: ONDANSETRON HYDROCHLORIDE
     Indication: VOMITING
     Dosage: UNK
     Route: 065
  3. OMEPRAZOLE. [Concomitant]
     Active Substance: OMEPRAZOLE
     Indication: PRODUCT USED FOR UNKNOWN INDICATION
     Dosage: UNK
     Route: 065

REACTIONS (11)
  - Helicobacter gastritis [Unknown]
  - Inflammatory myofibroblastic tumour [Unknown]
  - Gastrooesophageal reflux disease [Unknown]
  - Polyp [Unknown]
  - Lymphadenopathy [Unknown]
  - Abdominal mass [Unknown]
  - Oesophagitis [Unknown]
  - Obstruction gastric [Unknown]
  - Weight decreased [Unknown]
  - Duodenitis [Unknown]
  - Gastritis [Unknown]

NARRATIVE: CASE EVENT DATE: 20180306
